FAERS Safety Report 9410492 (Version 1)
Quarter: 2013Q3

REPORT INFORMATION
  Report Type: Spontaneous
  Country: US (occurrence: None)
  Receive Date: 20130718
  Receipt Date: 20130718
  Transmission Date: 20140515
  Serious: No
  Sender: FDA-Public Use
  Company Number: None

PATIENT
  Age: 48 Year
  Sex: Male
  Weight: 61.69 kg

DRUGS (7)
  1. FERAHEME [Suspect]
     Indication: ANAEMIA
     Dosage: 510MG ONCE IV BOLUS
     Route: 040
     Dates: start: 20130611, end: 20130611
  2. COMBIVENT INHALER [Concomitant]
  3. NORCO [Concomitant]
  4. FOLIC ACID [Concomitant]
  5. CYANOCOBALAMIN [Concomitant]
  6. LEVOFLOXACIN [Concomitant]
  7. MIRALAX [Concomitant]

REACTIONS (4)
  - Feeling cold [None]
  - Chills [None]
  - Chills [None]
  - Dyspnoea [None]
